FAERS Safety Report 6393198-X (Version None)
Quarter: 2009Q4

REPORT INFORMATION
  Report Type: 
  Country: None (occurrence: None)
  Receive Date: 20091008
  Receipt Date: 20090928
  Transmission Date: 20100525
  Serious: Yes (Life-Threatening, Hospitalization)
  Sender: FDA-Public Use
  Company Number: JP-BRISTOL-MYERS SQUIBB COMPANY-14618995

PATIENT
  Age: 73 Year
  Sex: Female

DRUGS (9)
  1. SPRYCEL [Suspect]
     Indication: CHRONIC MYELOID LEUKAEMIA
     Dosage: FROM 16MAR09-26MAR09; 140 MG/DAY RECENTLY TAKEN ON 27MAR09-27MAR09(70MG/D)
     Route: 048
     Dates: start: 20090316, end: 20090327
  2. VINCRISTINE SULFATE [Suspect]
     Indication: CHRONIC MYELOID LEUKAEMIA (IN REMISSION)
     Route: 065
     Dates: start: 20090309, end: 20090309
  3. PREDNISOLONE [Suspect]
     Indication: CHRONIC MYELOID LEUKAEMIA (IN REMISSION)
     Route: 065
     Dates: start: 20090309, end: 20090317
  4. CEFEPIME [Concomitant]
     Indication: SEPSIS
     Dosage: CEFEPIME DIHYDROCHLORIDE HYDRATE
     Dates: start: 20090322, end: 20090408
  5. CEFEPIME [Concomitant]
     Indication: FEBRILE NEUTROPENIA
     Dosage: CEFEPIME DIHYDROCHLORIDE HYDRATE
     Dates: start: 20090322, end: 20090408
  6. IMATINIB MESILATE [Concomitant]
     Dosage: 1 DF = 400-800MG/DAY.
     Dates: start: 20081105, end: 20090315
  7. OMEPRAZOLE [Concomitant]
     Dosage: OMEPRAZOLE SODIUM
     Route: 042
     Dates: start: 20090322, end: 20090325
  8. CONCENTRATED RED BLOOD CELLS [Concomitant]
     Dates: start: 20090325, end: 20090421
  9. PLATELETS [Concomitant]
     Dates: start: 20090326, end: 20090420

REACTIONS (2)
  - GASTROINTESTINAL HAEMORRHAGE [None]
  - WHITE BLOOD CELL COUNT DECREASED [None]
